FAERS Safety Report 4689247-7 (Version None)
Quarter: 2005Q2

REPORT INFORMATION
  Report Type: 
  Country: None (occurrence: None)
  Receive Date: 20050613
  Receipt Date: 20050419
  Transmission Date: 20051028
  Serious: Yes (Hospitalization)
  Sender: FDA-Public Use
  Company Number: US-MERCK-0504USA03552

PATIENT
  Age: 49 Year
  Sex: Male

DRUGS (1)
  1. ZETIA [Suspect]
     Indication: HYPERCHOLESTEROLAEMIA
     Route: 048
     Dates: start: 20050315, end: 20050401

REACTIONS (10)
  - DIARRHOEA [None]
  - DISORIENTATION [None]
  - ENCEPHALITIS VIRAL [None]
  - HYPOKALAEMIA [None]
  - INFLAMMATORY BOWEL DISEASE [None]
  - KLEBSIELLA INFECTION [None]
  - MENTAL STATUS CHANGES [None]
  - STRESS [None]
  - URINARY TRACT INFECTION [None]
  - URINARY TRACT INFECTION BACTERIAL [None]
